FAERS Safety Report 6759861-3 (Version None)
Quarter: 2010Q2

REPORT INFORMATION
  Report Type: 
  Country: None (occurrence: None)
  Receive Date: 20100524
  Receipt Date: 20100126
  Transmission Date: 20101027
  Serious: No
  Sender: FDA-Public Use
  Company Number: 005932

PATIENT
  Sex: Female
  Weight: 81.1 kg

DRUGS (12)
  1. CIMZIA [Suspect]
     Indication: CROHN'S DISEASE
     Dosage: (400 MG SUBCUTANEOUS)
     Route: 058
     Dates: start: 20100113
  2. CITALOPRAM [Concomitant]
  3. OMEPRAZOLE [Concomitant]
  4. HYDROCODONE [Concomitant]
  5. VITAMIN B-12 [Concomitant]
  6. CALCIUM CARBONATE [Concomitant]
  7. AMBIEN [Concomitant]
  8. LORAZEPAM [Concomitant]
  9. MULTI-VITAMINS [Concomitant]
  10. CLINDAMYCIN [Concomitant]
  11. DIFFERIN [Concomitant]
  12. CALMOSEPTINE /00244301/ [Concomitant]

REACTIONS (2)
  - DRUG ADMINISTERED AT INAPPROPRIATE SITE [None]
  - INJECTION SITE PAIN [None]
